FAERS Safety Report 18077402 (Version 2)
Quarter: 2022Q4

REPORT INFORMATION
  Report Type: Spontaneous
  Country: FR (occurrence: FR)
  Receive Date: 20200727
  Receipt Date: 20221125
  Transmission Date: 20230113
  Serious: Yes (Other)
  Sender: FDA-Public Use
  Company Number: FR-ALLERGAN-2027683US

PATIENT

DRUGS (1)
  1. UNSPECIFIED INGREDIENT [Suspect]
     Active Substance: UNSPECIFIED INGREDIENT
     Indication: Diabetic retinal oedema
     Dosage: 0.7 MG, SINGLE
     Route: 031

REACTIONS (3)
  - Diabetic retinopathy [Unknown]
  - Tractional retinal detachment [Unknown]
  - Vitreous haemorrhage [Unknown]
